FAERS Safety Report 11770622 (Version 3)
Quarter: 2016Q2

REPORT INFORMATION
  Report Type: Spontaneous
  Country: US (occurrence: US)
  Receive Date: 20151123
  Receipt Date: 20160427
  Transmission Date: 20160815
  Serious: No
  Sender: FDA-Public Use
  Company Number: US-AKRIMAX-TIR-2015-0368

PATIENT
  Age: 55 Year
  Sex: Female
  Weight: 61.74 kg

DRUGS (6)
  1. TIROSINT [Suspect]
     Active Substance: LEVOTHYROXINE SODIUM
     Indication: HYPOTHYROIDISM
     Route: 048
     Dates: start: 2013, end: 2013
  2. TIROSINT [Suspect]
     Active Substance: LEVOTHYROXINE SODIUM
     Indication: THYROIDECTOMY
     Dosage: ONCE DAILY
     Route: 048
     Dates: start: 201602, end: 20160309
  3. TIROSINT [Suspect]
     Active Substance: LEVOTHYROXINE SODIUM
     Indication: RADIOACTIVE IODINE THERAPY
     Dosage: ONCE DAILY
     Route: 048
     Dates: start: 20160309
  4. TIROSINT [Suspect]
     Active Substance: LEVOTHYROXINE SODIUM
     Indication: THYROIDECTOMY
  5. TIROSINT [Suspect]
     Active Substance: LEVOTHYROXINE SODIUM
     Indication: HYPOTHYROIDISM
     Dosage: 88MCG ONCE DAILY
     Route: 048
     Dates: start: 20151020
  6. TIROSINT [Suspect]
     Active Substance: LEVOTHYROXINE SODIUM
     Indication: RADIOACTIVE IODINE THERAPY

REACTIONS (19)
  - Peripheral swelling [Recovering/Resolving]
  - Somnolence [Not Recovered/Not Resolved]
  - Feeling jittery [Recovering/Resolving]
  - Somnolence [Recovering/Resolving]
  - Fatigue [Recovering/Resolving]
  - Abdominal distension [Not Recovered/Not Resolved]
  - Hypothyroidism [Recovering/Resolving]
  - Hyperhidrosis [Recovering/Resolving]
  - Weight increased [Unknown]
  - Abdominal distension [Unknown]
  - Peripheral swelling [Not Recovered/Not Resolved]
  - Weight increased [Recovering/Resolving]
  - Crying [Recovering/Resolving]
  - Thyroid function test abnormal [Unknown]
  - Muscular weakness [Recovering/Resolving]
  - Blood cholesterol increased [Unknown]
  - Malaise [Recovering/Resolving]
  - Abdominal distension [Recovering/Resolving]
  - Weight increased [Not Recovered/Not Resolved]

NARRATIVE: CASE EVENT DATE: 2013
